FAERS Safety Report 6381618-6 (Version None)
Quarter: 2009Q3

REPORT INFORMATION
  Report Type: 
  Country: None (occurrence: None)
  Receive Date: 20090925
  Receipt Date: 20090911
  Transmission Date: 20100115
  Serious: Yes (Other)
  Sender: FDA-Public Use
  Company Number: AMAG200900014

PATIENT
  Age: 68 Year
  Sex: Female
  Weight: 46.5 kg

DRUGS (2)
  1. GASTROMARK          (FERUMOXSIL) [Suspect]
     Indication: MAGNETIC RESONANCE CHOLANGIOPANCREATOGRAPHY
     Dosage: 300 ML, SINGLE, ORAL ; 300 ML, SINGLE, ORAL
     Route: 048
     Dates: start: 20090729, end: 20090729
  2. GASTROMARK          (FERUMOXSIL) [Suspect]
     Indication: MAGNETIC RESONANCE CHOLANGIOPANCREATOGRAPHY
     Dosage: 300 ML, SINGLE, ORAL ; 300 ML, SINGLE, ORAL
     Route: 048
     Dates: start: 20090731, end: 20090731

REACTIONS (5)
  - ABNORMAL WEIGHT GAIN [None]
  - DYSPHAGIA [None]
  - EPIGASTRIC DISCOMFORT [None]
  - GENERALISED OEDEMA [None]
  - MYALGIA [None]
